FAERS Safety Report 14841261 (Version 4)
Quarter: 2018Q3

REPORT INFORMATION
  Report Type: Report from Study
  Country: FR (occurrence: FR)
  Receive Date: 20180503
  Receipt Date: 20180808
  Transmission Date: 20181010
  Serious: Yes (Hospitalization, Other)
  Sender: FDA-Public Use
  Company Number: FR-BRISTOL-MYERS SQUIBB COMPANY-BMS-2018-039232

PATIENT
  Age: 31 Year
  Sex: Male
  Weight: 97 kg

DRUGS (2)
  1. NIVOLUMAB [Suspect]
     Active Substance: NIVOLUMAB
     Indication: MALIGNANT MELANOMA
     Dosage: UNK UNK, Q2WK
     Route: 042
     Dates: start: 20180319, end: 20180416
  2. IPILIMUMAB [Suspect]
     Active Substance: IPILIMUMAB
     Indication: MALIGNANT MELANOMA
     Dosage: UNK, Q2WK
     Route: 042
     Dates: start: 20180319, end: 20180416

REACTIONS (2)
  - Abdominal pain [Recovered/Resolved]
  - Hepatitis [Recovered/Resolved]

NARRATIVE: CASE EVENT DATE: 20180325
